FAERS Safety Report 13669304 (Version 2)
Quarter: 2017Q2

REPORT INFORMATION
  Report Type: Report from Study
  Country: TR (occurrence: TR)
  Receive Date: 20170620
  Receipt Date: 20170630
  Transmission Date: 20170830
  Serious: Yes (Other)
  Sender: FDA-Public Use
  Company Number: TR-REGENERON PHARMACEUTICALS, INC.-2017-17189

PATIENT

DRUGS (3)
  1. NORVASC [Concomitant]
     Active Substance: AMLODIPINE BESYLATE
     Indication: PRODUCT USED FOR UNKNOWN INDICATION
  2. ASPIRIN                            /00002701/ [Concomitant]
     Active Substance: ASPIRIN
     Indication: PRODUCT USED FOR UNKNOWN INDICATION
  3. EYLEA [Suspect]
     Active Substance: AFLIBERCEPT
     Indication: DIABETIC RETINAL OEDEMA
     Dosage: .05. SIX INJECTIONS WERE GIVEN IN TOTAL.
     Dates: start: 201601, end: 201701

REACTIONS (3)
  - Polypoidal choroidal vasculopathy [Unknown]
  - Macular oedema [Unknown]
  - Drug ineffective [Unknown]
